FAERS Safety Report 8845907 (Version 2)
Quarter: 2012Q4

REPORT INFORMATION
  Report Type: 
  Country: GB (occurrence: GB)
  Receive Date: 20121017
  Receipt Date: 20121026
  Transmission Date: 20130627
  Serious: Yes (Disabling)
  Sender: FDA-Public Use
  Company Number: GB-009507513-1210GBR006954

PATIENT
  Age: 60 Year
  Sex: Male

DRUGS (1)
  1. DEXAMETHASONE [Suspect]
     Dosage: UNK
     Route: 048
     Dates: start: 20120924, end: 20121001

REACTIONS (2)
  - Dysphagia [Unknown]
  - Oral candidiasis [Recovering/Resolving]
